FAERS Safety Report 14340048 (Version 2)
Quarter: 2018Q2

REPORT INFORMATION
  Report Type: Spontaneous
  Country: JP (occurrence: JP)
  Receive Date: 20171231
  Receipt Date: 20180412
  Transmission Date: 20180711
  Serious: Yes (Hospitalization, Other)
  Sender: FDA-Public Use
  Company Number: JP-BRISTOL-MYERS SQUIBB COMPANY-BMS-2017-118489

PATIENT
  Age: 71 Year
  Sex: Female

DRUGS (1)
  1. OPDIVO [Suspect]
     Active Substance: NIVOLUMAB
     Indication: GASTRIC CANCER RECURRENT
     Dosage: 160 MG, Q2WK
     Route: 041
     Dates: start: 20171006, end: 20171117

REACTIONS (2)
  - Product use in unapproved indication [Unknown]
  - Trousseau^s syndrome [Not Recovered/Not Resolved]

NARRATIVE: CASE EVENT DATE: 20171201
